FAERS Safety Report 8257106-9 (Version None)
Quarter: 2012Q2

REPORT INFORMATION
  Report Type: 
  Country: None (occurrence: None)
  Receive Date: 20120403
  Receipt Date: 20120323
  Transmission Date: 20120825
  Serious: Yes (Other)
  Sender: FDA-Public Use
  Company Number: US-JNJFOC-20120312990

PATIENT
  Sex: Female
  Weight: 55.34 kg

DRUGS (4)
  1. REMICADE [Suspect]
     Route: 042
     Dates: start: 20120306
  2. REMICADE [Suspect]
     Indication: RHEUMATOID ARTHRITIS
     Route: 042
     Dates: end: 20110701
  3. REMICADE [Suspect]
     Route: 042
     Dates: start: 20110701
  4. REMICADE [Suspect]
     Route: 042
     Dates: start: 20020101

REACTIONS (12)
  - NEURALGIA [None]
  - DRUG INEFFECTIVE [None]
  - PYREXIA [None]
  - CELLULITIS [None]
  - HERPES ZOSTER [None]
  - INFESTATION [None]
  - TOOTH RESORPTION [None]
  - LYME DISEASE [None]
  - EXPRESSIVE LANGUAGE DISORDER [None]
  - HEADACHE [None]
  - MENTAL IMPAIRMENT [None]
  - FATIGUE [None]
